FAERS Safety Report 22869333 (Version 5)
Quarter: 2023Q4

REPORT INFORMATION
  Report Type: Report from Study
  Country: US (occurrence: US)
  Receive Date: 20230826
  Receipt Date: 20231120
  Transmission Date: 20240109
  Serious: No
  Sender: FDA-Public Use
  Company Number: US-002147023-NVSC2023US185486

PATIENT
  Sex: Female

DRUGS (1)
  1. KESIMPTA [Suspect]
     Active Substance: OFATUMUMAB
     Indication: Multiple sclerosis
     Dosage: UNK
     Route: 065

REACTIONS (5)
  - Eye inflammation [Unknown]
  - Inflammation [Unknown]
  - Asthenia [Recovering/Resolving]
  - Upper respiratory tract infection [Unknown]
  - Cough [Unknown]
